FAERS Safety Report 15714549 (Version 1)
Quarter: 2018Q4

REPORT INFORMATION
  Report Type: Spontaneous
  Country: US (occurrence: US)
  Receive Date: 20181212
  Receipt Date: 20181212
  Transmission Date: 20190205
  Serious: No
  Sender: FDA-Public Use
  Company Number: US-EISAI MEDICAL RESEARCH-EC-2018-048702

PATIENT
  Sex: Male
  Weight: 117.9 kg

DRUGS (18)
  1. DONEPEZIL. [Suspect]
     Active Substance: DONEPEZIL
     Indication: MEMORY IMPAIRMENT
     Route: 048
  2. DIPYRIDAMOLE. [Concomitant]
     Active Substance: DIPYRIDAMOLE
     Indication: PRODUCT USED FOR UNKNOWN INDICATION
     Route: 048
  3. SPIRONOLACTONE. [Concomitant]
     Active Substance: SPIRONOLACTONE
     Indication: PRODUCT USED FOR UNKNOWN INDICATION
     Route: 048
  4. LYRICA [Concomitant]
     Active Substance: PREGABALIN
     Indication: NERVE INJURY
     Route: 048
  5. PANTOPRAZOLE [Concomitant]
     Active Substance: PANTOPRAZOLE
     Indication: PRODUCT USED FOR UNKNOWN INDICATION
     Route: 048
  6. CARVEDILOL. [Concomitant]
     Active Substance: CARVEDILOL
     Indication: BLOOD PRESSURE ABNORMAL
     Route: 048
  7. LEVOTHYROXINE. [Concomitant]
     Active Substance: LEVOTHYROXINE
     Indication: PRODUCT USED FOR UNKNOWN INDICATION
     Route: 048
  8. TRAZODONE [Concomitant]
     Active Substance: TRAZODONE HYDROCHLORIDE
     Indication: PRODUCT USED FOR UNKNOWN INDICATION
     Route: 048
  9. LYRICA [Concomitant]
     Active Substance: PREGABALIN
     Route: 048
  10. MODAFINIL. [Concomitant]
     Active Substance: MODAFINIL
     Indication: FATIGUE
     Route: 048
  11. LISINOPRIL. [Concomitant]
     Active Substance: LISINOPRIL
     Indication: BLOOD PRESSURE ABNORMAL
     Route: 048
  12. TELMISARTAN. [Concomitant]
     Active Substance: TELMISARTAN
     Indication: BLOOD PRESSURE ABNORMAL
     Dosage: 40/12.5MG 1 TABLET
     Route: 048
  13. ASPIRIN (E.C.) [Concomitant]
     Active Substance: ASPIRIN
     Indication: PRODUCT USED FOR UNKNOWN INDICATION
     Route: 048
  14. TAMSULOSIN HCL [Concomitant]
     Active Substance: TAMSULOSIN HYDROCHLORIDE
     Indication: PRODUCT USED FOR UNKNOWN INDICATION
     Route: 048
  15. HYDROCODONE/IBUPROFEN [Concomitant]
     Active Substance: HYDROCODONE\IBUPROFEN
     Indication: PAIN
     Dosage: 7.5/200 MG (1 TABLET)
     Route: 048
  16. MOVANTIK [Concomitant]
     Active Substance: NALOXEGOL OXALATE
     Indication: IRRITABLE BOWEL SYNDROME
     Route: 048
  17. MONTELUKAST [Concomitant]
     Active Substance: MONTELUKAST SODIUM
     Indication: PRODUCT USED FOR UNKNOWN INDICATION
     Route: 048
  18. SIMVASTATIN. [Concomitant]
     Active Substance: SIMVASTATIN
     Indication: BLOOD CHOLESTEROL ABNORMAL
     Route: 048

REACTIONS (2)
  - Expired product administered [Unknown]
  - Drug ineffective [Unknown]

NARRATIVE: CASE EVENT DATE: 2018
